FAERS Safety Report 9437588 (Version 3)
Quarter: 2014Q1

REPORT INFORMATION
  Report Type: Report from Study
  Country: SE (occurrence: SE)
  Receive Date: 20130802
  Receipt Date: 20140305
  Transmission Date: 20141002
  Serious: Yes (Hospitalization)
  Sender: FDA-Public Use
  Company Number: SE-BAYER-2013-023153

PATIENT
  Age: 67 Year
  Sex: Male
  Weight: 125 kg

DRUGS (11)
  1. ALPHARADIN [Suspect]
     Indication: HORMONE-REFRACTORY PROSTATE CANCER
     Dosage: 50 KGBQ/KG
     Route: 042
     Dates: start: 20121217, end: 20121217
  2. ALPHARADIN [Suspect]
     Indication: METASTASES TO BONE
     Dosage: 50 KGBQ/KG
     Route: 042
     Dates: start: 20130117, end: 20130117
  3. ALPHARADIN [Suspect]
     Indication: HORMONE-REFRACTORY PROSTATE CANCER
     Dosage: 50 KGBQ/KG
     Route: 042
     Dates: start: 20130214, end: 20130214
  4. ALPHARADIN [Suspect]
     Indication: HORMONE-REFRACTORY PROSTATE CANCER
     Dosage: 50 KGBQ/KG
     Route: 042
     Dates: start: 20130410, end: 20130410
  5. LOSARTAN [Concomitant]
     Indication: HYPERTENSION
     Dosage: 50MG/12.5MG PER DAY
     Route: 048
     Dates: start: 20110808
  6. DICLOFENAC [Concomitant]
     Indication: PAIN
     Dosage: DAILY DOSE 150 MG
     Route: 048
     Dates: start: 20120104
  7. ALVEDON [Concomitant]
     Indication: PAIN
     Dosage: DAILY DOSE 3 G
     Route: 048
     Dates: start: 201008
  8. MORPHINE [Concomitant]
     Indication: PAIN
     Dosage: 10 MG, PRN
     Route: 048
     Dates: start: 20120104
  9. OMEPROL [Concomitant]
     Indication: PROPHYLAXIS
     Dosage: DAILY DOSE 20 MG
     Route: 048
     Dates: start: 20130214
  10. DEPOLAN [Concomitant]
     Indication: PAIN
     Dosage: 20 MG, UNK
     Route: 048
     Dates: start: 20130301
  11. FRAGMIN [Concomitant]
     Indication: PROPHYLAXIS
     Dosage: 5000 U, UNK
     Route: 058
     Dates: start: 20130228, end: 20130324

REACTIONS (1)
  - Spinal cord compression [Recovering/Resolving]
